FAERS Safety Report 16529336 (Version 1)
Quarter: 2019Q3

REPORT INFORMATION
  Report Type: Spontaneous
  Country: US (occurrence: US)
  Receive Date: 20190704
  Receipt Date: 20190704
  Transmission Date: 20191004
  Serious: No
  Sender: FDA-Public Use
  Company Number: US-GW PHARMA-201904USGW1105

PATIENT

DRUGS (18)
  1. ONFI [Concomitant]
     Active Substance: CLOBAZAM
     Indication: PRODUCT USED FOR UNKNOWN INDICATION
     Dosage: 10 MG, TID( 10MG IN MORNING, 5MG IN AFTERNOON AND 10 MG AT BEDTIME)
     Route: 065
     Dates: start: 20190220
  2. EPIDIOLEX [Suspect]
     Active Substance: CANNABIDIOL
     Indication: EPILEPSY
     Dosage: 350 MILLIGRAM, BID
     Route: 048
     Dates: start: 20180901
  3. FELBATOL [Concomitant]
     Active Substance: FELBAMATE
     Indication: PRODUCT USED FOR UNKNOWN INDICATION
     Dosage: 300 MG, TID (3ML IN THE MORNING, 3ML MIDDAY)
     Route: 048
     Dates: start: 20190206
  4. FELBATOL [Concomitant]
     Active Substance: FELBAMATE
     Dosage: 150 MG, TID (BEDTIME GIVEN VIA GASTROSTOMY)
     Dates: start: 20190206
  5. ATARAX [Concomitant]
     Active Substance: HYDROXYZINE HYDROCHLORIDE
     Indication: PRODUCT USED FOR UNKNOWN INDICATION
     Dosage: 10 MG, QD
     Route: 048
  6. SABRIL [Concomitant]
     Active Substance: VIGABATRIN
     Indication: PRODUCT USED FOR UNKNOWN INDICATION
     Dosage: 500 MG, BID (MIX 2 PACKETS IN 20 ML WATER AND GIVE 20 ML (1000MG)
     Route: 048
  7. KEPPRA [Concomitant]
     Active Substance: LEVETIRACETAM
     Dosage: 500 MG,TID (1.5 TABLETS IN MORNING, 1 TABLET IN AFTERNOON AND 1.5 TABLETS AT BEDTIME)
     Route: 048
     Dates: start: 20190515
  8. RANITIDINE. [Concomitant]
     Active Substance: RANITIDINE
     Indication: PRODUCT USED FOR UNKNOWN INDICATION
     Dosage: UNK
     Route: 048
  9. DIASTAT ACUDIAL [Concomitant]
     Active Substance: DIAZEPAM
     Indication: SEIZURE
     Dosage: 5-7.5-10MG RECTAL KIT S NEEDED
     Route: 054
     Dates: start: 20181221
  10. EPIDIOLEX [Suspect]
     Active Substance: CANNABIDIOL
     Indication: SEVERE MYOCLONIC EPILEPSY OF INFANCY
  11. KLONOPIN [Concomitant]
     Active Substance: CLONAZEPAM
     Dosage: 1.5 MG, TID (1 1/2 TAB IN THE MORNING, 1 TABLET MIDDAY AND 1 TABS AT BEDTIME)
     Route: 065
     Dates: start: 20190408
  12. VIMPAT [Concomitant]
     Active Substance: LACOSAMIDE
     Indication: PRODUCT USED FOR UNKNOWN INDICATION
     Dosage: 100 MG, QD
     Route: 048
  13. GLYCOLAX [Concomitant]
     Active Substance: POLYETHYLENE GLYCOL 3350
     Indication: PRODUCT USED FOR UNKNOWN INDICATION
     Dosage: 17 G, QD
     Route: 048
  14. EPIDIOLEX [Suspect]
     Active Substance: CANNABIDIOL
     Indication: SEIZURE
  15. ZYRTEC [Concomitant]
     Active Substance: CETIRIZINE HYDROCHLORIDE
     Indication: PRODUCT USED FOR UNKNOWN INDICATION
     Dosage: 10 MG, QD
     Route: 048
  16. KLONOPIN [Concomitant]
     Active Substance: CLONAZEPAM
     Indication: PRODUCT USED FOR UNKNOWN INDICATION
     Dosage: 1.5 MG, TID (1 1/2 TAB IN THE MORNING, 1 TABLET MIDDAY AND 1 TABS AT BEDTIME)
     Route: 065
     Dates: start: 20190220, end: 20190508
  17. FLONASE [Concomitant]
     Active Substance: FLUTICASONE PROPIONATE
     Indication: PRODUCT USED FOR UNKNOWN INDICATION
     Dosage: 50 MCG, QD(2 SPRAYS INTO EACH NOSTRIL DAILY)
     Route: 045
  18. KEPPRA [Concomitant]
     Active Substance: LEVETIRACETAM
     Indication: PRODUCT USED FOR UNKNOWN INDICATION
     Dosage: 500 MG,TID (1.5 TABLETS IN MORNING, 1 TABLET IN AFTERNOON AND 1.5 TABLETS AT BEDTIME)
     Route: 048
     Dates: start: 20190220, end: 20190515

REACTIONS (3)
  - Seizure [Unknown]
  - Seizure [Unknown]
  - Therapeutic product effect decreased [Unknown]

NARRATIVE: CASE EVENT DATE: 201903
